FAERS Safety Report 15800703 (Version 1)
Quarter: 2019Q1

REPORT INFORMATION
  Report Type: Report from Study
  Country: None (occurrence: US)
  Receive Date: 20190109
  Receipt Date: 20190109
  Transmission Date: 20190417
  Serious: Yes (Hospitalization)
  Sender: FDA-Public Use
  Company Number: US-ABBVIE-18S-163-2601270-00

PATIENT
  Sex: Male
  Weight: 69.01 kg

DRUGS (7)
  1. OMEPRAZOLE. [Concomitant]
     Active Substance: OMEPRAZOLE
     Indication: GASTROOESOPHAGEAL REFLUX DISEASE
  2. MARINOL [Suspect]
     Active Substance: DRONABINOL
     Indication: NAUSEA
     Route: 048
  3. OXYMORPHONE [Concomitant]
     Active Substance: OXYMORPHONE
     Indication: PAIN
  4. MARINOL [Suspect]
     Active Substance: DRONABINOL
     Indication: VOMITING
  5. MARINOL [Suspect]
     Active Substance: DRONABINOL
     Indication: WEIGHT DECREASED
     Route: 048
     Dates: start: 2001
  6. NIFEDIPINE. [Concomitant]
     Active Substance: NIFEDIPINE
     Indication: HYPERTENSION
  7. METOPROLOL. [Concomitant]
     Active Substance: METOPROLOL
     Indication: HYPERTENSION

REACTIONS (12)
  - Emphysema [Unknown]
  - Intervertebral disc degeneration [Not Recovered/Not Resolved]
  - Muscle spasms [Not Recovered/Not Resolved]
  - Dyspepsia [Unknown]
  - Neck pain [Not Recovered/Not Resolved]
  - Lumbar radiculopathy [Not Recovered/Not Resolved]
  - Radicular pain [Unknown]
  - Insomnia [Recovering/Resolving]
  - Nausea [Not Recovered/Not Resolved]
  - Blood sodium decreased [Recovered/Resolved]
  - Radiation sickness syndrome [Not Recovered/Not Resolved]
  - Chronic obstructive pulmonary disease [Unknown]

NARRATIVE: CASE EVENT DATE: 2001
